FAERS Safety Report 23149371 (Version 2)
Quarter: 2025Q2

REPORT INFORMATION
  Report Type: Other
  Country: GB (occurrence: GB)
  Receive Date: 20231106
  Receipt Date: 20250519
  Transmission Date: 20250716
  Serious: Yes (Other)
  Sender: GLENMARK
  Company Number: GB-GLENMARK PHARMACEUTICALS-2023GMK086132

PATIENT
  Age: 4 Year
  Sex: Male
  Weight: 17 kg

DRUGS (3)
  1. MONTELUKAST SODIUM [Suspect]
     Active Substance: MONTELUKAST SODIUM
     Indication: Asthma
     Route: 065
  2. ALBUTEROL [Concomitant]
     Active Substance: ALBUTEROL
     Indication: Asthma
     Route: 065
  3. SERETIDE [Concomitant]
     Active Substance: FLUTICASONE PROPIONATE\SALMETEROL XINAFOATE
     Indication: Asthma
     Route: 065

REACTIONS (7)
  - Sleep terror [Unknown]
  - Hyperhidrosis [Unknown]
  - Bruxism [Unknown]
  - Screaming [Unknown]
  - Head banging [Unknown]
  - Dyskinesia [Unknown]
  - Nightmare [Unknown]
